FAERS Safety Report 25919645 (Version 4)
Quarter: 2025Q4

REPORT INFORMATION
  Report Type: Spontaneous
  Country: CN (occurrence: CN)
  Receive Date: 20251014
  Receipt Date: 20251112
  Transmission Date: 20260119
  Serious: Yes (Hospitalization, Other)
  Sender: PFIZER
  Company Number: CN-PFIZER INC-PV202500120734

PATIENT
  Age: 2 Month
  Sex: Female

DRUGS (6)
  1. MEROPENEM [Suspect]
     Active Substance: MEROPENEM
     Indication: Diarrhoea
     Dosage: 20 MG/KG ONCE PER 8 HOURS
     Route: 042
     Dates: start: 20240714
  2. MEROPENEM [Suspect]
     Active Substance: MEROPENEM
     Indication: Pyrexia
     Dosage: 40 MG/KG, 3X/DAY (DOUBLED)
     Route: 042
     Dates: start: 20240717, end: 20240720
  3. MEROPENEM [Suspect]
     Active Substance: MEROPENEM
     Indication: Intracranial infection
  4. MEROPENEM [Suspect]
     Active Substance: MEROPENEM
     Indication: Enterobacter infection
  5. MEROPENEM [Suspect]
     Active Substance: MEROPENEM
     Indication: Meningitis
  6. ACETAMINOPHEN [Concomitant]
     Active Substance: ACETAMINOPHEN
     Indication: Pyrexia
     Dosage: 5 MG/KG, AS NEEDED
     Route: 048
     Dates: start: 202407, end: 20240718

REACTIONS (2)
  - Drug-induced liver injury [Recovered/Resolved]
  - Off label use [Unknown]

NARRATIVE: CASE EVENT DATE: 20240714
